FAERS Safety Report 8547866-1 (Version None)
Quarter: 2012Q3

REPORT INFORMATION
  Report Type: 
  Country: None (occurrence: None)
  Receive Date: 20120727
  Receipt Date: 20120720
  Transmission Date: 20120928
  Serious: Yes (Other)
  Sender: FDA-Public Use
  Company Number: US-ASTRAZENECA-2011SE29007

PATIENT
  Age: 57 Year
  Sex: Female
  Weight: 43.1 kg

DRUGS (7)
  1. SYMBICORT [Suspect]
     Dosage: 160/4.5 TWO PUFFS, BID
     Route: 055
     Dates: start: 20110301
  2. ALBUTEROL [Concomitant]
  3. SPIRIVA [Concomitant]
  4. SYMBICORT [Suspect]
     Dosage: 160/4.5 TWO PUFFS, BID
     Route: 055
     Dates: start: 20110301
  5. CADUET [Concomitant]
  6. SYMBICORT [Suspect]
     Indication: BRONCHITIS
     Dosage: 320 MCG BID
     Route: 055
     Dates: start: 20060101
  7. SYMBICORT [Suspect]
     Indication: CHRONIC OBSTRUCTIVE PULMONARY DISEASE
     Dosage: 320 MCG BID
     Route: 055
     Dates: start: 20060101

REACTIONS (3)
  - ARTHRITIS [None]
  - THERAPEUTIC RESPONSE UNEXPECTED [None]
  - OFF LABEL USE [None]
